FAERS Safety Report 8851120 (Version 28)
Quarter: 2016Q4

REPORT INFORMATION
  Report Type: Report from Study
  Country: CA (occurrence: CA)
  Receive Date: 20121019
  Receipt Date: 20161215
  Transmission Date: 20170207
  Serious: Yes (Hospitalization, Other)
  Sender: FDA-Public Use
  Company Number: PHHY2012CA017740

PATIENT
  Age: 67 Year
  Sex: Male
  Weight: 118.82 kg

DRUGS (11)
  1. TAMSULOSIN [Suspect]
     Active Substance: TAMSULOSIN
     Indication: NEUROENDOCRINE TUMOUR
     Dosage: 0.8 MG, QD
     Route: 048
  2. PREDNISONE. [Concomitant]
     Active Substance: PREDNISONE
     Indication: PRODUCT USED FOR UNKNOWN INDICATION
     Route: 065
  3. VITAMIN B-1 [Concomitant]
     Active Substance: THIAMINE
     Indication: PRODUCT USED FOR UNKNOWN INDICATION
     Route: 065
  4. VITAMIN B12 [Concomitant]
     Active Substance: CYANOCOBALAMIN
     Indication: PRODUCT USED FOR UNKNOWN INDICATION
     Route: 065
  5. AMITRIPTYLINE [Concomitant]
     Active Substance: AMITRIPTYLINE
     Indication: PRODUCT USED FOR UNKNOWN INDICATION
     Route: 065
  6. VITAMIN B6 [Concomitant]
     Active Substance: PYRIDOXINE HYDROCHLORIDE
     Indication: PRODUCT USED FOR UNKNOWN INDICATION
     Route: 065
  7. DILAUDID [Concomitant]
     Active Substance: HYDROMORPHONE HYDROCHLORIDE
     Indication: PRODUCT USED FOR UNKNOWN INDICATION
     Route: 065
  8. SANDOSTATIN [Suspect]
     Active Substance: OCTREOTIDE ACETATE
     Indication: NEUROENDOCRINE TUMOUR
     Route: 058
  9. PREGABALIN. [Suspect]
     Active Substance: PREGABALIN
     Indication: NEUROENDOCRINE TUMOUR
     Dosage: 300 MG, BID
     Route: 048
  10. SANDOSTATIN LAR DEPOT [Suspect]
     Active Substance: OCTREOTIDE ACETATE
     Indication: NEUROENDOCRINE TUMOUR
     Dosage: 20 MG, QMO
     Route: 030
     Dates: start: 20111128
  11. LOPERAMIDE [Concomitant]
     Active Substance: LOPERAMIDE
     Indication: PRODUCT USED FOR UNKNOWN INDICATION
     Route: 065

REACTIONS (27)
  - Peripheral swelling [Unknown]
  - Weight increased [Unknown]
  - Oedema peripheral [Recovering/Resolving]
  - Swelling [Unknown]
  - Gait disturbance [Unknown]
  - Dysbacteriosis [Not Recovered/Not Resolved]
  - Blood pressure systolic increased [Unknown]
  - Pain in extremity [Unknown]
  - Anxiety [Unknown]
  - Lymphoedema [Unknown]
  - Skin lesion [Recovered/Resolved]
  - Erythema [Unknown]
  - Apathy [Unknown]
  - Localised oedema [Unknown]
  - Malaise [Unknown]
  - Back pain [Unknown]
  - Drug ineffective [Unknown]
  - Diarrhoea [Not Recovered/Not Resolved]
  - Emotional distress [Unknown]
  - Pain [Unknown]
  - Scratch [Unknown]
  - Irritable bowel syndrome [Not Recovered/Not Resolved]
  - Skin fissures [Unknown]
  - Fall [Unknown]
  - Inflammation [Unknown]
  - Skin tightness [Unknown]
  - Needle issue [Unknown]

NARRATIVE: CASE EVENT DATE: 20121005
